FAERS Safety Report 13526971 (Version 5)
Quarter: 2017Q3

REPORT INFORMATION
  Report Type: Report from Study
  Country: MX (occurrence: MX)
  Receive Date: 20170509
  Receipt Date: 20170817
  Transmission Date: 20171127
  Serious: Yes (Hospitalization)
  Sender: FDA-Public Use
  Company Number: MX-PFIZER INC-2017185479

PATIENT
  Age: 80 Year
  Sex: Female
  Weight: 49 kg

DRUGS (6)
  1. FOLIVITAL [Concomitant]
     Dosage: 2.5 MG, 1X/DAY
     Route: 048
     Dates: start: 201511, end: 20170425
  2. TRIACOR [Concomitant]
     Dosage: 10 MG, 1X/DAY
     Route: 048
     Dates: start: 2014
  3. CELEBREX [Concomitant]
     Active Substance: CELECOXIB
     Dosage: 200 MG, 1X/DAY
     Route: 048
     Dates: start: 201605, end: 20170425
  4. TOFACITINIB CITRATE [Suspect]
     Active Substance: TOFACITINIB CITRATE
     Indication: RHEUMATOID ARTHRITIS
     Dosage: 5 MG, 2X/DAY
     Route: 048
     Dates: start: 20160713, end: 20170425
  5. LEDERTREXATO [Concomitant]
     Active Substance: METHOTREXATE SODIUM
     Dosage: 7.5 MG, WEEKLY
     Route: 048
     Dates: start: 201511, end: 20170425
  6. LOSECA [Concomitant]
     Dosage: 20 MG, 1X/DAY
     Route: 048
     Dates: start: 201605

REACTIONS (2)
  - Pelvic abscess [Recovered/Resolved]
  - Diverticulitis [Recovered/Resolved]

NARRATIVE: CASE EVENT DATE: 20170421
